FAERS Safety Report 9238128 (Version 2)
Quarter: 2013Q2

REPORT INFORMATION
  Report Type: Spontaneous
  Country: IT (occurrence: IT)
  Receive Date: 20130418
  Receipt Date: 20130422
  Transmission Date: 20140414
  Serious: Yes (Other)
  Sender: FDA-Public Use
  Company Number: PHHY2013IT036425

PATIENT
  Age: 77 Year
  Sex: Female

DRUGS (2)
  1. ZOMETA [Suspect]
     Indication: METASTASES TO BONE
     Dosage: ONE POSOLOGIC UNIT PER CYCLE
     Route: 042
     Dates: start: 20071201, end: 20080501
  2. BONDRONAT [Suspect]
     Indication: METASTASES TO BONE
     Dosage: 1 POSOLOGIC UNIT
     Route: 048
     Dates: start: 20080601, end: 20081101

REACTIONS (3)
  - Oral infection [Unknown]
  - Abscess [Unknown]
  - Purulent discharge [Unknown]
